FAERS Safety Report 7405419 (Version 4)
Quarter: 2015Q4

REPORT INFORMATION
  Report Type: Spontaneous
  Country: US (occurrence: US)
  Receive Date: 20100601
  Receipt Date: 20151124
  Transmission Date: 20160305
  Serious: Yes (Hospitalization, Other)
  Sender: FDA-Public Use
  Company Number: US-BAYER-201023981NA

PATIENT
  Age: 35 Year
  Sex: Female
  Weight: 68.27 kg

DRUGS (2)
  1. CLOBETASOL [Concomitant]
     Active Substance: CLOBETASOL
     Dosage: 0.05 %, UNK
  2. YAZ [Suspect]
     Active Substance: DROSPIRENONE\ETHINYL ESTRADIOL
     Indication: PRODUCT USED FOR UNKNOWN INDICATION
     Dosage: UNK UNK, UNK
     Route: 048
     Dates: start: 2005, end: 20080615

REACTIONS (2)
  - Cerebrovascular accident [None]
  - Embolism arterial [None]

NARRATIVE: CASE EVENT DATE: 20080615
